FAERS Safety Report 15691142 (Version 1)
Quarter: 2018Q4

REPORT INFORMATION
  Report Type: Spontaneous
  Country: CI (occurrence: CI)
  Receive Date: 20181205
  Receipt Date: 20181205
  Transmission Date: 20190205
  Serious: Yes (Disabling)
  Sender: FDA-Public Use
  Company Number: PHHY2018CI173181

PATIENT
  Age: 38 Year
  Sex: Male

DRUGS (1)
  1. BIODROXIL [Suspect]
     Active Substance: CEFADROXIL
     Indication: PNEUMONITIS
     Dosage: 2000 MG, QD
     Route: 048
     Dates: start: 20181112, end: 20181115

REACTIONS (3)
  - Hyperhidrosis [Unknown]
  - Hypoglycaemia [Unknown]
  - Flushing [Unknown]

NARRATIVE: CASE EVENT DATE: 20181113
